FAERS Safety Report 20660871 (Version 5)
Quarter: 2022Q3

REPORT INFORMATION
  Report Type: Report from Study
  Country: US (occurrence: US)
  Receive Date: 20220331
  Receipt Date: 20220826
  Transmission Date: 20221027
  Serious: Yes (Hospitalization, Other)
  Sender: FDA-Public Use
  Company Number: US-BoehringerIngelheim-2021-BI-143619

PATIENT
  Age: 79 Year
  Sex: Male

DRUGS (1)
  1. OFEV [Suspect]
     Active Substance: NINTEDANIB
     Indication: Idiopathic pulmonary fibrosis
     Dosage: 103969
     Route: 048
     Dates: start: 20211004

REACTIONS (13)
  - Knee arthroplasty [Recovered/Resolved]
  - Cholecystectomy [Unknown]
  - Gastrointestinal haemorrhage [Unknown]
  - Diverticulitis [Unknown]
  - Anaemia [Unknown]
  - Post procedural sepsis [Recovered/Resolved]
  - Pneumonitis [Recovered/Resolved]
  - Dyspnoea [Recovering/Resolving]
  - Pleural effusion [Recovered/Resolved]
  - Wound infection [Unknown]
  - Pneumonia [Unknown]
  - Muscle spasms [Unknown]
  - Sputum retention [Unknown]

NARRATIVE: CASE EVENT DATE: 20210101
